FAERS Safety Report 7197773-4 (Version None)
Quarter: 2010Q4

REPORT INFORMATION
  Report Type: 
  Country: None (occurrence: None)
  Receive Date: 20101208
  Receipt Date: 20101201
  Transmission Date: 20110411
  Serious: Yes (Other)
  Sender: FDA-Public Use
  Company Number: 2010SP062722

PATIENT
  Sex: Female

DRUGS (2)
  1. SAPHRIS [Suspect]
     Indication: PSYCHOTIC DISORDER
     Dosage: 10 MG; BID, SL; 20 MG; HS;SL
     Route: 060
  2. ZYPREXA [Concomitant]

REACTIONS (6)
  - INCORRECT DOSE ADMINISTERED [None]
  - OFF LABEL USE [None]
  - PSYCHOTIC DISORDER [None]
  - SEDATION [None]
  - SPEECH DISORDER [None]
  - TREATMENT NONCOMPLIANCE [None]
